FAERS Safety Report 4744046-2 (Version None)
Quarter: 2005Q3

REPORT INFORMATION
  Report Type: 
  Country: None (occurrence: None)
  Receive Date: 20050809
  Receipt Date: 20050804
  Transmission Date: 20060218
  Serious: Yes (Other)
  Sender: FDA-Public Use
  Company Number: 02/04362-USE

PATIENT
  Age: 89 Year
  Sex: Female

DRUGS (6)
  1. BETAPACE [Suspect]
     Indication: ARRHYTHMIA
     Dosage: SEE IMAGE
     Dates: start: 20020101, end: 20020907
  2. BETAPACE [Suspect]
     Indication: ARRHYTHMIA
     Dosage: SEE IMAGE
     Dates: start: 20010913
  3. BETAPACE [Suspect]
     Indication: ARRHYTHMIA
     Dosage: SEE IMAGE
     Dates: start: 20020907
  4. DIOVAN ^NOVARTIS^ (VALSARTAN) [Concomitant]
  5. ALPHAGAN [Concomitant]
  6. TRUSOPT [Concomitant]

REACTIONS (3)
  - CONDITION AGGRAVATED [None]
  - GLAUCOMA [None]
  - IMPAIRED DRIVING ABILITY [None]
